FAERS Safety Report 4427401-X (Version None)
Quarter: 2004Q3

REPORT INFORMATION
  Report Type: 
  Country: None (occurrence: None)
  Receive Date: 20040817
  Receipt Date: 20040806
  Transmission Date: 20050211
  Serious: Yes (Other)
  Sender: FDA-Public Use
  Company Number: PHEH2004US08622

PATIENT
  Sex: 0

DRUGS (2)
  1. FEMARA [Suspect]
  2. ZOMETA [Suspect]

REACTIONS (2)
  - INTRACRANIAL PRESSURE INCREASED [None]
  - OSTEONECROSIS [None]
